FAERS Safety Report 15401360 (Version 2)
Quarter: 2018Q4

REPORT INFORMATION
  Report Type: Spontaneous
  Country: US (occurrence: US)
  Receive Date: 20180919
  Receipt Date: 20181016
  Transmission Date: 20190204
  Serious: No
  Sender: FDA-Public Use
  Company Number: US-SA-2018SA260234

PATIENT
  Sex: Female

DRUGS (1)
  1. TUBERSOL [Suspect]
     Active Substance: TUBERCULIN PURIFIED PROTEIN DERIVATIVE
     Indication: IMMUNISATION
     Dosage: UNK
     Route: 058
     Dates: start: 20180822, end: 20180822

REACTIONS (10)
  - Inflammation [Unknown]
  - Vaccination site reaction [Unknown]
  - Incorrect route of product administration [Unknown]
  - Paraesthesia oral [Recovered/Resolved]
  - Hypoaesthesia oral [Recovered/Resolved]
  - Burning sensation [Not Recovered/Not Resolved]
  - Pain in extremity [Not Recovered/Not Resolved]
  - Wrong technique in product usage process [Unknown]
  - Erythema [Recovered/Resolved]
  - Injected limb mobility decreased [Unknown]
